FAERS Safety Report 4400080-3 (Version None)
Quarter: 2004Q3

REPORT INFORMATION
  Report Type: 
  Country: None (occurrence: None)
  Receive Date: 20040716
  Receipt Date: 20040707
  Transmission Date: 20050211
  Serious: Yes (Other)
  Sender: FDA-Public Use
  Company Number: JP-MERCK-0407USA00819

PATIENT
  Age: 43 Day
  Sex: Male
  Weight: 1 kg

DRUGS (1)
  1. INDOCIN I.V. [Suspect]
     Indication: PATENT DUCTUS ARTERIOSUS
     Route: 042

REACTIONS (2)
  - CARDIOMEGALY [None]
  - COARCTATION OF THE AORTA [None]
